FAERS Safety Report 4588200-1 (Version None)
Quarter: 2005Q1

REPORT INFORMATION
  Report Type: 
  Country: None (occurrence: None)
  Receive Date: 20050221
  Receipt Date: 20050210
  Transmission Date: 20050727
  Serious: Yes (Hospitalization)
  Sender: FDA-Public Use
  Company Number: CH-GLAXOSMITHKLINE-B0372094A

PATIENT
  Sex: Female

DRUGS (8)
  1. AMOXICILLIN AND CLAVULANATE POTASSIUM [Suspect]
     Dosage: 1G TWICE PER DAY
     Route: 048
     Dates: start: 20050107, end: 20050101
  2. BELOC [Concomitant]
     Dosage: 10MG TWICE PER DAY
     Route: 048
  3. CALCIMAGON-D3 [Concomitant]
     Route: 048
  4. LASILACTON [Concomitant]
     Route: 048
  5. EUTHYROX [Concomitant]
     Dosage: 50MG PER DAY
     Route: 048
  6. DEANXIT [Concomitant]
     Route: 048
  7. STILNOX [Concomitant]
     Dosage: 10MG PER DAY
     Route: 048
  8. AMIODARONE HCL [Concomitant]
     Indication: HYPOTHYROIDISM

REACTIONS (10)
  - ENDOCARDITIS [None]
  - EXANTHEM [None]
  - HENOCH-SCHONLEIN PURPURA [None]
  - PETECHIAE [None]
  - PLATELET COUNT INCREASED [None]
  - PRURITUS [None]
  - RASH PAPULAR [None]
  - RED BLOOD CELL SEDIMENTATION RATE INCREASED [None]
  - VASCULITIS [None]
  - WHITE BLOOD CELL COUNT INCREASED [None]
